FAERS Safety Report 7708746-4 (Version None)
Quarter: 2011Q3

REPORT INFORMATION
  Report Type: 
  Country: None (occurrence: None)
  Receive Date: 20110825
  Receipt Date: 20110825
  Transmission Date: 20111222
  Serious: Yes (Hospitalization)
  Sender: FDA-Public Use
  Company Number: None

PATIENT
  Age: 14 Year
  Sex: Female
  Weight: 55.791 kg

DRUGS (2)
  1. ASACOL [Suspect]
     Indication: COLITIS ULCERATIVE
     Dosage: 5 TABLETS -2000MG-
     Route: 048
     Dates: start: 20110422, end: 20110428
  2. BALSALAZIDE DISODIUM [Concomitant]
     Indication: COLITIS ULCERATIVE
     Dosage: 3 TABLETS -1500MG-
     Route: 048
     Dates: start: 20110507, end: 20110521

REACTIONS (4)
  - FATIGUE [None]
  - ABDOMINAL PAIN [None]
  - SINUS CONGESTION [None]
  - DIARRHOEA HAEMORRHAGIC [None]
